FAERS Safety Report 9348295 (Version 2)
Quarter: 2014Q1

REPORT INFORMATION
  Report Type: Spontaneous
  Country: GB (occurrence: GB)
  Receive Date: 20130614
  Receipt Date: 20140311
  Transmission Date: 20141002
  Serious: Yes (Other)
  Sender: FDA-Public Use
  Company Number: GB-PFIZER INC-2013175179

PATIENT
  Age: 78 Year
  Sex: Female

DRUGS (2)
  1. DOXYCYCLINE MONOHYDRATE [Suspect]
     Indication: INFECTION
     Dosage: UNK
     Route: 048
     Dates: start: 201204, end: 2012
  2. RIFADIN [Suspect]
     Indication: INFECTION
     Dosage: UNK
     Route: 048
     Dates: start: 201204, end: 2012

REACTIONS (2)
  - Hypoacusis [Unknown]
  - Amnesia [Unknown]
